FAERS Safety Report 8846659 (Version 1)
Quarter: 2012Q4

REPORT INFORMATION
  Report Type: 
  Country: US (occurrence: US)
  Receive Date: 20121017
  Receipt Date: 20121017
  Transmission Date: 20130627
  Serious: Yes (Other)
  Sender: FDA-Public Use
  Company Number: CHPA2012US021241

PATIENT
  Age: 28 Year
  Sex: Female

DRUGS (1)
  1. TRANSDERM SCOP [Suspect]
     Indication: MOTION SICKNESS
     Dosage: 1 DF, Unk
     Route: 062

REACTIONS (1)
  - Pupillary disorder [Not Recovered/Not Resolved]
